FAERS Safety Report 8153413 (Version 9)
Quarter: 2017Q2

REPORT INFORMATION
  Report Type: Spontaneous
  Country: US (occurrence: US)
  Receive Date: 20110923
  Receipt Date: 20170427
  Transmission Date: 20170830
  Serious: Yes (Other)
  Sender: FDA-Public Use
  Company Number: US-PFIZER INC-2011219883

PATIENT
  Sex: Male
  Weight: 113 kg

DRUGS (13)
  1. IBUPROFEN. [Suspect]
     Active Substance: IBUPROFEN
     Indication: DIABETIC NEUROPATHY
     Dosage: UNK
  2. VIAGRA [Concomitant]
     Active Substance: SILDENAFIL CITRATE
     Indication: SEXUAL DYSFUNCTION
     Dosage: UNK
  3. TRAMADOL HYDROCHLORIDE. [Concomitant]
     Active Substance: TRAMADOL HYDROCHLORIDE
     Indication: PAIN IN EXTREMITY
  4. LYRICA [Suspect]
     Active Substance: PREGABALIN
     Indication: HYPOAESTHESIA
  5. LYRICA [Suspect]
     Active Substance: PREGABALIN
     Indication: JOINT SWELLING
  6. TRAMADOL HYDROCHLORIDE. [Concomitant]
     Active Substance: TRAMADOL HYDROCHLORIDE
     Indication: NEUROPATHY PERIPHERAL
     Dosage: 100 MG, 4X/DAY
  7. MORPHINE [Concomitant]
     Active Substance: MORPHINE
     Indication: NEUROPATHY PERIPHERAL
     Dosage: 30 MG, 3X/DAY
  8. METFORMIN [Concomitant]
     Active Substance: METFORMIN HYDROCHLORIDE
     Indication: DIABETES MELLITUS
     Dosage: 850 MG, 2X/DAY
     Dates: start: 2000
  9. ASPIRIN. [Concomitant]
     Active Substance: ASPIRIN
     Indication: NEUROPATHY PERIPHERAL
     Dosage: UNK
  10. LYRICA [Suspect]
     Active Substance: PREGABALIN
     Indication: DIABETIC NEUROPATHY
     Dosage: 75 MG, 4X/DAY
     Route: 048
  11. LYRICA [Suspect]
     Active Substance: PREGABALIN
     Indication: NEUROPATHY PERIPHERAL
     Dosage: 150 MG, 4X/DAY
     Route: 048
     Dates: end: 20170412
  12. NOVOLOG MIX 70/30 [Concomitant]
     Active Substance: INSULIN ASPART
     Indication: DIABETES MELLITUS
     Dosage: 37 IU, 2X/DAY
  13. TAMSULOSIN HYDROCHLORIDE. [Concomitant]
     Active Substance: TAMSULOSIN HYDROCHLORIDE
     Indication: PROSTATE INFECTION
     Dosage: 0.4 MG, 1X/DAY

REACTIONS (14)
  - Pain in extremity [Unknown]
  - Condition aggravated [Not Recovered/Not Resolved]
  - Joint swelling [Unknown]
  - Schizophrenia [Unknown]
  - Bursitis [Not Recovered/Not Resolved]
  - Gait disturbance [Unknown]
  - Drug effect incomplete [Unknown]
  - Drug effect delayed [Unknown]
  - Restless legs syndrome [Unknown]
  - Pain [Unknown]
  - Emotional disorder [Unknown]
  - Muscle spasms [Not Recovered/Not Resolved]
  - Factitious disorder [Unknown]
  - Constipation [Unknown]

NARRATIVE: CASE EVENT DATE: 201704
